FAERS Safety Report 16716589 (Version 2)
Quarter: 2019Q3

REPORT INFORMATION
  Report Type: Report from Study
  Country: US (occurrence: US)
  Receive Date: 20190819
  Receipt Date: 20190909
  Transmission Date: 20191005
  Serious: Yes (Other)
  Sender: FDA-Public Use
  Company Number: US-ROCHE-2376115

PATIENT
  Age: 69 Year
  Sex: Male
  Weight: 81.72 kg

DRUGS (2)
  1. BACLOFEN. [Concomitant]
     Active Substance: BACLOFEN
     Dosage: ONGOING : YES, REFILED EVERY 5 MONTHS
     Route: 065
  2. OCREVUS [Suspect]
     Active Substance: OCRELIZUMAB
     Indication: PRIMARY PROGRESSIVE MULTIPLE SCLEROSIS
     Dosage: 1ST SPLIT DOSE?NEXT INFUSION: 20/AUG/2019
     Route: 042
     Dates: start: 201802

REACTIONS (5)
  - Cystitis [Recovered/Resolved]
  - Loss of consciousness [Recovered/Resolved]
  - Pruritus [Recovered/Resolved]
  - Urticaria [Recovered/Resolved]
  - Urinary tract infection [Recovered/Resolved]

NARRATIVE: CASE EVENT DATE: 201802
